FAERS Safety Report 8890818 (Version 11)
Quarter: 2014Q1

REPORT INFORMATION
  Report Type: Report from Study
  Country: CA (occurrence: CA)
  Receive Date: 20121107
  Receipt Date: 20140123
  Transmission Date: 20141002
  Serious: Yes (Other)
  Sender: FDA-Public Use
  Company Number: CA-ROCHE-1140815

PATIENT
  Age: 79 Year
  Sex: Female

DRUGS (5)
  1. ZELBORAF [Suspect]
     Indication: METASTATIC MALIGNANT MELANOMA
     Route: 048
     Dates: start: 201208
  2. ZELBORAF [Suspect]
     Route: 048
     Dates: start: 20120927
  3. ZELBORAF [Suspect]
     Route: 048
     Dates: start: 201211, end: 20130830
  4. ZELBORAF [Suspect]
     Route: 048
     Dates: start: 20131216
  5. HYDROCHLOROTHIAZIDE [Concomitant]
     Route: 048

REACTIONS (8)
  - Liver function test abnormal [Unknown]
  - Renal function test abnormal [Unknown]
  - Blood creatinine increased [Unknown]
  - Brain tumour operation [Unknown]
  - Asthenia [Not Recovered/Not Resolved]
  - Somnolence [Not Recovered/Not Resolved]
  - Pruritus [Recovered/Resolved]
  - Malignant neoplasm progression [Unknown]
